FAERS Safety Report 6794596-2 (Version None)
Quarter: 2010Q2

REPORT INFORMATION
  Report Type: 
  Country: None (occurrence: None)
  Receive Date: 20100625
  Receipt Date: 20100617
  Transmission Date: 20101027
  Serious: Yes (Hospitalization)
  Sender: FDA-Public Use
  Company Number: US-JNJFOC-20100606159

PATIENT
  Sex: Male
  Weight: 90.72 kg

DRUGS (3)
  1. DURAGESIC-100 [Suspect]
     Indication: PAIN
     Dosage: 100 MCG AND 25 MCG
     Route: 062
     Dates: start: 20050101, end: 20100101
  2. DURAGESIC-100 [Suspect]
     Route: 062
     Dates: start: 20100101
  3. DURAGESIC-100 [Suspect]
     Route: 062
     Dates: start: 20100101

REACTIONS (3)
  - DRUG DOSE OMISSION [None]
  - OSTEONECROSIS [None]
  - WRONG TECHNIQUE IN DRUG USAGE PROCESS [None]
